FAERS Safety Report 5208017-4 (Version None)
Quarter: 2007Q1

REPORT INFORMATION
  Report Type: 
  Country: None (occurrence: None)
  Receive Date: 20070110
  Receipt Date: 20061227
  Transmission Date: 20070707
  Serious: Yes (Hospitalization)
  Sender: FDA-Public Use
  Company Number: PHNU2006DEC04244

PATIENT
  Age: 39 Year
  Sex: Male
  Weight: 92 kg

DRUGS (1)
  1. LAMISIL [Suspect]
     Dosage: 1 DF, ONCE/SINGLE, TOPICAL
     Route: 061
     Dates: start: 20061123, end: 20061123

REACTIONS (5)
  - BLISTER [None]
  - DYSSTASIA [None]
  - INFLAMMATION [None]
  - OEDEMA PERIPHERAL [None]
  - PRURITUS [None]
